FAERS Safety Report 16744969 (Version 1)
Quarter: 2019Q3

REPORT INFORMATION
  Report Type: Spontaneous
  Country: DE (occurrence: DE)
  Receive Date: 20190827
  Receipt Date: 20190827
  Transmission Date: 20191005
  Serious: Yes (Hospitalization)
  Sender: FDA-Public Use
  Company Number: DE-TEVA-2019-DE-1096704

PATIENT
  Age: 39 Year
  Sex: Male

DRUGS (7)
  1. NOVAMIN [Concomitant]
     Dosage: 2.5 G
  2. TRANXILIUM [Suspect]
     Active Substance: CLORAZEPATE DIPOTASSIUM
     Route: 065
  3. TRILEPTAL [Concomitant]
     Active Substance: OXCARBAZEPINE
     Dosage: 300 MG, 1-0-0-1
  4. CLONIDIN [Suspect]
     Active Substance: CLONIDINE
     Dosage: 0.075 MG, 1-0-0-1
  5. RINGERLOESUNG [Concomitant]
  6. AMOXICLAV [Concomitant]
     Active Substance: AMOXICILLIN\CLAVULANATE POTASSIUM
     Dosage: TABLETS
  7. DISTRANEURIN [Suspect]
     Active Substance: CLOMETHIAZOLE
     Dosage: 10 ML, DEMAND, JUICE

REACTIONS (5)
  - Eye movement disorder [Unknown]
  - Depressed level of consciousness [Unknown]
  - Hyperhidrosis [Unknown]
  - Accidental overdose [Unknown]
  - Miosis [Unknown]

NARRATIVE: CASE EVENT DATE: 20171218
